FAERS Safety Report 14689757 (Version 1)
Quarter: 2018Q1

REPORT INFORMATION
  Report Type: Spontaneous
  Country: US (occurrence: US)
  Receive Date: 20180327
  Receipt Date: 20180327
  Transmission Date: 20180509
  Serious: Yes (Hospitalization)
  Sender: FDA-Public Use
  Company Number: None

PATIENT
  Sex: Female

DRUGS (14)
  1. PROCHLORPER [Concomitant]
  2. GLEOSTINE [Suspect]
     Active Substance: LOMUSTINE
     Indication: BRAIN NEOPLASM MALIGNANT
     Route: 048
     Dates: start: 20171028
  3. PROAIR HFA AER [Concomitant]
  4. MEGESTROL AC [Concomitant]
  5. MATULANE [Concomitant]
     Active Substance: PROCARBAZINE HYDROCHLORIDE
  6. RANITIDINE. [Concomitant]
     Active Substance: RANITIDINE
  7. ZOCOR [Concomitant]
     Active Substance: SIMVASTATIN
  8. FLORASTOR [Concomitant]
     Active Substance: SACCHAROMYCES CEREVISIAE
  9. ASPRIN LOW [Concomitant]
  10. GLEOSTINE [Suspect]
     Active Substance: LOMUSTINE
     Indication: BRAIN NEOPLASM MALIGNANT
     Route: 048
     Dates: start: 20171028
  11. SMZ-TMP [Concomitant]
     Active Substance: SULFAMETHOXAZOLE\TRIMETHOPRIM
  12. ZYRTEC [Concomitant]
     Active Substance: CETIRIZINE HYDROCHLORIDE
  13. FLONASE [Concomitant]
     Active Substance: FLUTICASONE PROPIONATE
  14. VITAMIN B [Concomitant]
     Active Substance: VITAMIN B

REACTIONS (5)
  - Feeling abnormal [None]
  - Dysphemia [None]
  - Cerebrovascular accident [None]
  - Nausea [None]
  - Eye disorder [None]
